FAERS Safety Report 9120291 (Version 3)
Quarter: 2013Q2

REPORT INFORMATION
  Report Type: Report from Study
  Country: AU (occurrence: AU)
  Receive Date: 20130226
  Receipt Date: 20130402
  Transmission Date: 20140414
  Serious: Yes (Other)
  Sender: FDA-Public Use
  Company Number: AU-VERTEX PHARMACEUTICALS INC.-2013-002649

PATIENT
  Age: 56 Year
  Sex: Male

DRUGS (6)
  1. VX-950 (TELAPREVIR) [Suspect]
     Indication: HEPATITIS C
     Dosage: UNK
     Route: 048
     Dates: start: 20121207, end: 20130122
  2. VX-950 (TELAPREVIR) [Suspect]
     Dosage: UNK
     Dates: start: 2013
  3. PEG-INTERFERON [Suspect]
     Indication: HEPATITIS C
     Dosage: UNK (180 (UNITS UNSPECIFIED), RECEIVED TREATMENT ON 19-FEB-2013)
     Route: 065
     Dates: start: 20130128
  4. PEG-INTERFERON [Suspect]
     Dosage: UNK
     Route: 065
     Dates: start: 20121012, end: 20130122
  5. RIBAVIRIN [Suspect]
     Indication: HEPATITIS C
     Dosage: 1000 (UNITS UNSPECIFIED), RECEIVED TREATMENT ON 19-FEB-2013)
     Route: 065
     Dates: start: 20130126
  6. RIBAVIRIN [Suspect]
     Dosage: 1200 (UNITS UNSPECIFIED)
     Route: 065
     Dates: start: 20121012, end: 20130122

REACTIONS (1)
  - Acute generalised exanthematous pustulosis [Recovered/Resolved]
